FAERS Safety Report 6333366-6 (Version None)
Quarter: 2009Q3

REPORT INFORMATION
  Report Type: 
  Country: None (occurrence: None)
  Receive Date: 20090828
  Receipt Date: 20090820
  Transmission Date: 20100115
  Serious: Yes (Life-Threatening, Hospitalization)
  Sender: FDA-Public Use
  Company Number: FR-ABBOTT-09P-056-0590047-00

PATIENT
  Sex: Male

DRUGS (5)
  1. NORVIR [Suspect]
     Indication: HIV INFECTION
     Route: 048
     Dates: start: 20090310
  2. GYNERGENE [Interacting]
     Indication: MIGRAINE
     Route: 048
     Dates: start: 20090101, end: 20090707
  3. PREZISTA [Interacting]
     Indication: HIV INFECTION
     Route: 048
     Dates: start: 20090310
  4. TRUVADA [Concomitant]
     Indication: HIV INFECTION
     Dates: start: 20090310
  5. AMLODIPINE [Concomitant]
     Indication: HYPERTENSION

REACTIONS (14)
  - AORTITIS [None]
  - ARTERIAL STENOSIS [None]
  - ASTHENIA [None]
  - C-REACTIVE PROTEIN INCREASED [None]
  - DRUG INTERACTION [None]
  - ENDOCARDITIS [None]
  - ERGOT POISONING [None]
  - GENERAL PHYSICAL HEALTH DETERIORATION [None]
  - HYPERTENSION [None]
  - ILIAC ARTERY STENOSIS [None]
  - INTERMITTENT CLAUDICATION [None]
  - RENAL ARTERY STENOSIS [None]
  - RENAL INFARCT [None]
  - WEIGHT DECREASED [None]
